FAERS Safety Report 11156365 (Version 1)
Quarter: 2015Q2

REPORT INFORMATION
  Report Type: Spontaneous
  Country: US (occurrence: US)
  Receive Date: 20150602
  Receipt Date: 20150602
  Transmission Date: 20150821
  Serious: Yes (Other)
  Sender: FDA-Public Use
  Company Number: US-JNJFOC-20150519838

PATIENT
  Age: 71 Year

DRUGS (1)
  1. XARELTO [Suspect]
     Active Substance: RIVAROXABAN
     Indication: PRODUCT USED FOR UNKNOWN INDICATION
     Route: 048
     Dates: start: 20120517, end: 20120829

REACTIONS (3)
  - Gastrointestinal haemorrhage [Unknown]
  - Acute kidney injury [Unknown]
  - Anaemia [Unknown]

NARRATIVE: CASE EVENT DATE: 201205
